FAERS Safety Report 10528433 (Version 4)
Quarter: 2015Q2

REPORT INFORMATION
  Report Type: Report from Study
  Country: US (occurrence: US)
  Receive Date: 20141020
  Receipt Date: 20150428
  Transmission Date: 20150821
  Serious: Yes (Other)
  Sender: FDA-Public Use
  Company Number: US-SA-2014SA104820

PATIENT
  Age: 55 Year
  Sex: Female
  Weight: 124.73 kg

DRUGS (3)
  1. AUBAGIO [Suspect]
     Active Substance: TERIFLUNOMIDE
     Indication: MULTIPLE SCLEROSIS
     Route: 048
     Dates: start: 2014, end: 20141101
  2. AUBAGIO [Suspect]
     Active Substance: TERIFLUNOMIDE
     Indication: MULTIPLE SCLEROSIS
     Route: 048
     Dates: start: 20140714, end: 20140930
  3. AUBAGIO [Suspect]
     Active Substance: TERIFLUNOMIDE
     Indication: MULTIPLE SCLEROSIS
     Route: 048
     Dates: start: 20140701

REACTIONS (8)
  - Crohn^s disease [Recovered/Resolved]
  - Abdominal discomfort [Recovering/Resolving]
  - Condition aggravated [Recovered/Resolved]
  - Uveitis [Unknown]
  - Inflammation [Unknown]
  - Muscle spasms [Not Recovered/Not Resolved]
  - Diarrhoea [Recovering/Resolving]
  - Condition aggravated [Unknown]

NARRATIVE: CASE EVENT DATE: 20140708
